FAERS Safety Report 9056026 (Version 2)
Quarter: 2013Q1

REPORT INFORMATION
  Report Type: Spontaneous
  Country: US (occurrence: US)
  Receive Date: 20130205
  Receipt Date: 20130309
  Transmission Date: 20140127
  Serious: No
  Sender: FDA-Public Use
  Company Number: US-TEVA-382292USA

PATIENT
  Sex: Male

DRUGS (5)
  1. COPAXONE [Suspect]
     Indication: MULTIPLE SCLEROSIS
  2. AMPYRA [Concomitant]
  3. FORTEO [Concomitant]
  4. CALCIUM D [Concomitant]
  5. VIAGRA [Concomitant]

REACTIONS (1)
  - Urticaria [Unknown]
